FAERS Safety Report 23584750 (Version 1)
Quarter: 2024Q1

REPORT INFORMATION
  Report Type: Spontaneous
  Country: FR (occurrence: FR)
  Receive Date: 20240301
  Receipt Date: 20240301
  Transmission Date: 20240410
  Serious: Yes (Hospitalization)
  Sender: FDA-Public Use
  Company Number: None

PATIENT
  Age: 52 Year
  Sex: Female
  Weight: 63 kg

DRUGS (2)
  1. OCREVUS [Suspect]
     Active Substance: OCRELIZUMAB
     Indication: Progressive multiple sclerosis
     Route: 065
     Dates: start: 20210603
  2. DALFAMPRIDINE [Suspect]
     Active Substance: DALFAMPRIDINE
     Indication: Progressive multiple sclerosis
     Route: 065
     Dates: start: 201802

REACTIONS (1)
  - Reversible cerebral vasoconstriction syndrome [Recovering/Resolving]

NARRATIVE: CASE EVENT DATE: 20231127
